FAERS Safety Report 18239995 (Version 2)
Quarter: 2020Q3

REPORT INFORMATION
  Report Type: Spontaneous
  Country: JP (occurrence: JP)
  Receive Date: 20200908
  Receipt Date: 20200915
  Transmission Date: 20201103
  Serious: Yes (Hospitalization)
  Sender: FDA-Public Use
  Company Number: JP-TEVA-2020-JP-1824693

PATIENT
  Age: 79 Year
  Sex: Female
  Weight: 26.5 kg

DRUGS (3)
  1. PREDNISOLONE. [Suspect]
     Active Substance: PREDNISOLONE
     Indication: IMMUNOSUPPRESSANT DRUG THERAPY
     Dosage: 7.5 MILLIGRAM DAILY; LONG?TERM THERAPY, HAD BEEN RECEIVING FOR 3 YEARS
     Route: 065
  2. AMOXICILLIN?CLAVULANATE [Suspect]
     Active Substance: AMOXICILLIN\CLAVULANIC ACID
     Indication: CELLULITIS
     Dosage: 500 MILLIGRAM DAILY; 250MG TWICE DAILY
     Route: 048
  3. TACROLIMUS. [Suspect]
     Active Substance: TACROLIMUS
     Indication: IMMUNOSUPPRESSANT DRUG THERAPY
     Dosage: 2 MILLIGRAM DAILY; LONG?TERM THERAPY, HAD BEEN RECEIVING FOR 2 YEARS
     Route: 065

REACTIONS (3)
  - Mycobacterium chelonae infection [Recovering/Resolving]
  - Drug ineffective [Unknown]
  - Osteomyelitis [Recovered/Resolved with Sequelae]
